FAERS Safety Report 13276704 (Version 1)
Quarter: 2017Q1

REPORT INFORMATION
  Report Type: Spontaneous
  Country: US (occurrence: US)
  Receive Date: 20170228
  Receipt Date: 20170228
  Transmission Date: 20170428
  Serious: No
  Sender: FDA-Public Use
  Company Number: None

PATIENT
  Age: 50 Year
  Sex: Male

DRUGS (2)
  1. ZOSYN [Suspect]
     Active Substance: PIPERACILLIN SODIUM\TAZOBACTAM SODIUM
  2. LINEZOLID. [Suspect]
     Active Substance: LINEZOLID

REACTIONS (3)
  - Pain in extremity [None]
  - Thrombocytopenia [None]
  - Gangrene [None]

NARRATIVE: CASE EVENT DATE: 20160729
